FAERS Safety Report 23657610 (Version 1)
Quarter: 2024Q1

REPORT INFORMATION
  Report Type: Spontaneous
  Country: US (occurrence: None)
  Receive Date: 20240320
  Receipt Date: 20240320
  Transmission Date: 20240410
  Serious: Yes (Other)
  Sender: FDA-Public Use
  Company Number: None

PATIENT
  Age: 29 Year
  Sex: Female
  Weight: 92.7 kg

DRUGS (9)
  1. CIPROFLOXACIN [Suspect]
     Active Substance: CIPROFLOXACIN
     Indication: Urinary tract infection
     Dosage: OTHER QUANTITY : 1 TABLET(S);?FREQUENCY : EVERY 12 HOURS;?
     Route: 048
     Dates: start: 20240319, end: 20240320
  2. Spironolactone 200mg [Concomitant]
  3. B-12 2500mg [Concomitant]
  4. Biotin 5,000mg [Concomitant]
  5. Magnesium 200mg [Concomitant]
  6. CoQ10 300mg [Concomitant]
  7. D-3 1,000 IU [Concomitant]
  8. Cranberry 650mg [Concomitant]
  9. D-Mannose 1,500 mg Live probiotics [Concomitant]

REACTIONS (10)
  - Musculoskeletal stiffness [None]
  - Joint stiffness [None]
  - Joint noise [None]
  - Paraesthesia [None]
  - Arthralgia [None]
  - Arthralgia [None]
  - Fatigue [None]
  - Brain fog [None]
  - Therapy cessation [None]
  - Therapy change [None]

NARRATIVE: CASE EVENT DATE: 20240320
